FAERS Safety Report 5378453-4 (Version None)
Quarter: 2007Q3

REPORT INFORMATION
  Report Type: 
  Country: None (occurrence: None)
  Receive Date: 20070702
  Receipt Date: 20070618
  Transmission Date: 20080115
  Serious: Yes (Hospitalization)
  Sender: FDA-Public Use
  Company Number: L07-NLD-02653-01

PATIENT
  Age: 85 Year
  Sex: Female

DRUGS (1)
  1. CITALOPRAM HYDROBROMIDE [Suspect]
     Indication: DEPRESSION

REACTIONS (4)
  - FACIAL PALSY [None]
  - GAIT DISTURBANCE [None]
  - INAPPROPRIATE ANTIDIURETIC HORMONE SECRETION [None]
  - SOMNOLENCE [None]
